FAERS Safety Report 23011519 (Version 2)
Quarter: 2025Q1

REPORT INFORMATION
  Report Type: Spontaneous
  Country: US (occurrence: US)
  Receive Date: 20230929
  Receipt Date: 20250217
  Transmission Date: 20250409
  Serious: No
  Sender: ALKERMES
  Company Number: US-ALKERMES INC.-ALK-2023-003794

PATIENT
  Age: 38 Year
  Sex: Male
  Weight: 95.238 kg

DRUGS (3)
  1. VIVITROL [Suspect]
     Active Substance: NALTREXONE
     Indication: Alcoholism
     Route: 030
     Dates: start: 2023
  2. VIVITROL [Suspect]
     Active Substance: NALTREXONE
     Route: 030
     Dates: start: 2022, end: 202308
  3. OMEPRAZOLE [Concomitant]
     Active Substance: OMEPRAZOLE
     Indication: Product used for unknown indication
     Route: 065

REACTIONS (12)
  - Drug abuse [Unknown]
  - Paranoia [Recovered/Resolved]
  - Neuralgia [Recovered/Resolved]
  - Alcohol use [Not Recovered/Not Resolved]
  - Dizziness [Not Recovered/Not Resolved]
  - Malaise [Recovered/Resolved]
  - Headache [Unknown]
  - Nausea [Unknown]
  - Injection site swelling [Recovered/Resolved]
  - Injection site bruising [Recovered/Resolved]
  - Injection site induration [Recovered/Resolved]
  - Injection site infection [Recovered/Resolved]

NARRATIVE: CASE EVENT DATE: 20230101
